FAERS Safety Report 15662587 (Version 1)
Quarter: 2018Q4

REPORT INFORMATION
  Report Type: Report from Study
  Country: US (occurrence: US)
  Receive Date: 20181127
  Receipt Date: 20181127
  Transmission Date: 20190205
  Serious: Yes (Life-Threatening, Hospitalization)
  Sender: FDA-Public Use
  Company Number: US-TEVA-2018-US-980548

PATIENT
  Age: 17 Year
  Sex: Female

DRUGS (2)
  1. DILTIAZEM. [Suspect]
     Active Substance: DILTIAZEM
     Route: 042
     Dates: start: 2016
  2. METOPROLOL. [Suspect]
     Active Substance: METOPROLOL
     Route: 042
     Dates: start: 2016

REACTIONS (4)
  - Hypotension [Recovered/Resolved]
  - Medication error [Unknown]
  - Cardiac arrest [Recovered/Resolved]
  - Toxicity to various agents [Unknown]

NARRATIVE: CASE EVENT DATE: 2016
